FAERS Safety Report 21738991 (Version 3)
Quarter: 2023Q1

REPORT INFORMATION
  Report Type: Spontaneous
  Country: US (occurrence: US)
  Receive Date: 20221216
  Receipt Date: 20230103
  Transmission Date: 20230417
  Serious: No
  Sender: FDA-Public Use
  Company Number: US-ORGANON-O2212USA000795

PATIENT
  Sex: Female
  Weight: 143.31 kg

DRUGS (1)
  1. NEXPLANON [Suspect]
     Active Substance: ETONOGESTREL
     Indication: Contraception
     Dosage: 1 IMPLANT OF 68 MG IN LEFT ARM
     Route: 059
     Dates: start: 202003, end: 20221130

REACTIONS (3)
  - Device breakage [Recovered/Resolved]
  - Device kink [Recovered/Resolved]
  - No adverse event [Unknown]
